FAERS Safety Report 4328114-5 (Version None)
Quarter: 2004Q1

REPORT INFORMATION
  Report Type: 
  Country: None (occurrence: None)
  Receive Date: 20040325
  Receipt Date: 20040312
  Transmission Date: 20041129
  Serious: Yes (Hospitalization)
  Sender: FDA-Public Use
  Company Number: HQWYE894816MAR04

PATIENT
  Age: 79 Year
  Sex: Male
  Weight: 79.9 kg

DRUGS (8)
  1. CORDARONE [Suspect]
     Indication: ATRIAL FIBRILLATION
     Dosage: 200 MG 2X PER 1 DAY, ORAL
     Route: 048
     Dates: start: 20010901
  2. CORDARONE [Suspect]
     Indication: ATRIAL FIBRILLATION
     Dosage: 200 MG 2X PER 1 DAY, ORAL
     Route: 048
     Dates: start: 20031101
  3. PROSCAR [Concomitant]
  4. DIGOXIN [Concomitant]
  5. PLENDIL [Concomitant]
  6. LPRESSOR (METOPROLOL TARTRATE) [Concomitant]
  7. LASIX [Concomitant]
  8. LUPRON [Concomitant]

REACTIONS (4)
  - MALIGNANT NEOPLASM PROGRESSION [None]
  - PNEUMONIA [None]
  - PROSTATE CANCER [None]
  - RENAL DISORDER [None]
